FAERS Safety Report 25797480 (Version 4)
Quarter: 2025Q4

REPORT INFORMATION
  Report Type: Spontaneous
  Country: EU (occurrence: EU)
  Receive Date: 20250912
  Receipt Date: 20251214
  Transmission Date: 20260117
  Serious: Yes (Other)
  Sender: JOHNSON AND JOHNSON
  Company Number: EU-JNJFOC-20250611408

PATIENT
  Sex: Female

DRUGS (7)
  1. RYBREVANT [Suspect]
     Active Substance: AMIVANTAMAB-VMJW
     Indication: Non-small cell lung cancer metastatic
     Dosage: INFUSION NO: 4
  2. RYBREVANT [Suspect]
     Active Substance: AMIVANTAMAB-VMJW
     Dosage: INFUSION NO: 3
  3. RYBREVANT [Suspect]
     Active Substance: AMIVANTAMAB-VMJW
  4. RYBREVANT [Suspect]
     Active Substance: AMIVANTAMAB-VMJW
     Dosage: INFUSION NO: 2
  5. RYBREVANT [Suspect]
     Active Substance: AMIVANTAMAB-VMJW
  6. RYBREVANT [Suspect]
     Active Substance: AMIVANTAMAB-VMJW
     Dosage: THERAPY END DATE: 19-MAY-2025
  7. RYBREVANT [Suspect]
     Active Substance: AMIVANTAMAB-VMJW
     Dosage: W13

REACTIONS (4)
  - Mucosal inflammation [Unknown]
  - Inappropriate schedule of product administration [Unknown]
  - Adverse reaction [Unknown]
  - Off label use [Unknown]
